FAERS Safety Report 5241373-X (Version None)
Quarter: 2007Q1

REPORT INFORMATION
  Report Type: 
  Country: None (occurrence: None)
  Receive Date: 20070220
  Receipt Date: 20070126
  Transmission Date: 20070707
  Serious: Yes (Hospitalization)
  Sender: FDA-Public Use
  Company Number: DE-PURDUE-DEU_2007_0002933

PATIENT
  Age: 51 Year
  Sex: Male
  Weight: 86 kg

DRUGS (12)
  1. OXY/NALOXONE VS OXY/PLACEBO CR TAB [Suspect]
     Indication: BACK PAIN
     Dosage: 50 MG, DAILY
     Route: 048
     Dates: start: 20061104, end: 20070104
  2. OXY/NALOXONE VS OXY/PLACEBO CR TAB [Suspect]
     Dosage: 40 MG, DAILY
     Route: 048
     Dates: start: 20061103, end: 20061103
  3. OXY/NALOXONE VS OXY/PLACEBO CR TAB [Suspect]
     Dosage: 50 MG, DAILY
     Route: 048
     Dates: start: 20061102, end: 20061102
  4. OXY/NALOXONE VS OXY/PLACEBO CR TAB [Suspect]
     Dosage: 30 MG, DAILY
     Route: 048
     Dates: start: 20061101, end: 20061101
  5. OXYGESIC KAPSELN 5MG [Suspect]
     Dosage: 5 MG, PRN
     Route: 048
     Dates: start: 20061103
  6. GABAPENTIN [Concomitant]
  7. ASPIRIN [Concomitant]
  8. PRAVASTATIN [Concomitant]
  9. DULCOLAX [Concomitant]
  10. FORTECORTIN [Concomitant]
  11. PANTOZOL [Concomitant]
  12. FRAGMIN [Concomitant]

REACTIONS (1)
  - HEMIPARESIS [None]
